FAERS Safety Report 16206680 (Version 1)
Quarter: 2019Q2

REPORT INFORMATION
  Report Type: Report from Study
  Country: KR (occurrence: KR)
  Receive Date: 20190417
  Receipt Date: 20190417
  Transmission Date: 20190711
  Serious: Yes (Death, Life-Threatening)
  Sender: FDA-Public Use
  Company Number: KR-DSJP-DSJ-2019-113252

PATIENT

DRUGS (14)
  1. DAILIX [Concomitant]
     Indication: CARDIAC FAILURE
     Dosage: 1 DF, BID
     Route: 048
     Dates: start: 20180922, end: 20190220
  2. CRESTOR [Concomitant]
     Active Substance: ROSUVASTATIN CALCIUM
     Indication: PROPHYLAXIS
     Dosage: 1 DF, QD
     Route: 048
     Dates: start: 20180615, end: 20190220
  3. NEBISTOL [Concomitant]
     Indication: ANGINA PECTORIS
     Dosage: 1 DF, QD
     Route: 048
     Dates: start: 20180615, end: 20190221
  4. ALDACTONE [Concomitant]
     Active Substance: SPIRONOLACTONE
     Indication: CARDIAC FAILURE
     Dosage: 1 DF, BID
     Route: 048
     Dates: start: 20180510, end: 20190223
  5. STILLEN [Concomitant]
     Indication: GASTROINTESTINAL DISORDER PROPHYLAXIS
     Dosage: 1 DF, QD
     Route: 048
     Dates: start: 20180613, end: 20190221
  6. LUKIO [Concomitant]
     Indication: CHRONIC OBSTRUCTIVE PULMONARY DISEASE
     Dosage: 1 DF, QD
     Route: 048
     Dates: start: 20180612, end: 20190219
  7. GODEX                              /06761501/ [Concomitant]
     Indication: PROPHYLAXIS
     Dosage: 1 DF, TID
     Route: 048
     Dates: start: 20190109, end: 20190228
  8. GLIATILIN [Concomitant]
     Active Substance: CHOLINE ALFOSCERATE
     Indication: DEMENTIA
     Dosage: 1 DF, QD
     Route: 048
     Dates: start: 20180613, end: 20190227
  9. FEXONADINE [Concomitant]
     Indication: CHRONIC OBSTRUCTIVE PULMONARY DISEASE
     Dosage: 1 DF, QD
     Route: 048
     Dates: start: 20180612, end: 20190223
  10. SEPTRIN [Concomitant]
     Active Substance: SULFAMETHOXAZOLE\TRIMETHOPRIM
     Indication: CHRONIC LYMPHOCYTIC LEUKAEMIA
     Dosage: 1 DF, QD
     Route: 048
     Dates: start: 20190109, end: 20190223
  11. ZOYLEX                             /00587301/ [Concomitant]
     Indication: CHRONIC LYMPHOCYTIC LEUKAEMIA
     Dosage: 1 DF, QD
     Route: 048
     Dates: start: 20190109, end: 20190223
  12. EDOXABAN [Suspect]
     Active Substance: EDOXABAN TOSYLATE
     Indication: PRODUCT USED FOR UNKNOWN INDICATION
     Dosage: 30 MG, QD
     Route: 048
     Dates: start: 20181030, end: 20190227
  13. ANTIBIO [Concomitant]
     Indication: CONSTIPATION PROPHYLAXIS
     Dosage: 1 DF, BID
     Route: 048
     Dates: start: 20180922, end: 20190223
  14. ELOTON [Concomitant]
     Active Substance: ISOSORBIDE MONONITRATE
     Indication: ANGINA PECTORIS
     Dosage: 1 DF, BID
     Route: 048
     Dates: start: 20180615, end: 20190220

REACTIONS (1)
  - Colon cancer [Fatal]

NARRATIVE: CASE EVENT DATE: 20190219
